FAERS Safety Report 8996142 (Version 2)
Quarter: 2013Q1

REPORT INFORMATION
  Report Type: Spontaneous
  Country: FR (occurrence: FR)
  Receive Date: 20130103
  Receipt Date: 20130107
  Transmission Date: 20140127
  Serious: Yes (Hospitalization, Other)
  Sender: FDA-Public Use
  Company Number: FR-JNJFOC-20121205083

PATIENT
  Age: 47 None
  Sex: Female

DRUGS (2)
  1. XARELTO [Suspect]
     Indication: DEEP VEIN THROMBOSIS
     Route: 048
     Dates: start: 20121113, end: 201211
  2. ETHINYLESTRADIOL/GESTODENE [Suspect]
     Indication: CONTRACEPTION
     Route: 048
     Dates: start: 2006, end: 20121113

REACTIONS (2)
  - Metrorrhagia [Unknown]
  - Deep vein thrombosis [Unknown]
